FAERS Safety Report 11054151 (Version 1)
Quarter: 2015Q2

REPORT INFORMATION
  Report Type: Spontaneous
  Country: US (occurrence: US)
  Receive Date: 20150422
  Receipt Date: 20150422
  Transmission Date: 20150821
  Serious: No
  Sender: FDA-Public Use
  Company Number: US-B.I. PHARMACEUTICALS,INC./RIDGEFIELD-2015-BI-19411BP

PATIENT
  Age: 65 Year
  Sex: Male

DRUGS (5)
  1. COMBIVENT [Suspect]
     Active Substance: ALBUTEROL SULFATE\IPRATROPIUM BROMIDE
     Indication: CHRONIC OBSTRUCTIVE PULMONARY DISEASE
     Dosage: DOSE PER APPLICATION: 20 MCG / 100 MCG; DAILY DOSE: 80 MCG/ 400 MCG
     Route: 055
  2. LISINOPRIL. [Concomitant]
     Active Substance: LISINOPRIL
     Indication: HYPERTENSION
     Route: 048
  3. BROVANA [Concomitant]
     Active Substance: ARFORMOTEROL TARTRATE
     Indication: PRODUCT USED FOR UNKNOWN INDICATION
     Route: 055
  4. BUDESONIDE. [Concomitant]
     Active Substance: BUDESONIDE
     Indication: PRODUCT USED FOR UNKNOWN INDICATION
     Route: 055
  5. ALLEREST [Concomitant]
     Active Substance: CHLORPHENIRAMINE MALEATE\PHENYLEPHRINE HYDROCHLORIDE
     Indication: PRODUCT USED FOR UNKNOWN INDICATION
     Route: 048

REACTIONS (3)
  - Dyspnoea [Recovered/Resolved]
  - Dysphonia [Recovered/Resolved]
  - Throat irritation [Recovered/Resolved]

NARRATIVE: CASE EVENT DATE: 20150408
